FAERS Safety Report 6711239-4 (Version None)
Quarter: 2010Q2

REPORT INFORMATION
  Report Type: 
  Country: None (occurrence: None)
  Receive Date: 20100427
  Receipt Date: 20090407
  Transmission Date: 20101027
  Serious: Yes (Hospitalization)
  Sender: FDA-Public Use
  Company Number: 2009-0016-EUR

PATIENT
  Age: 61 Year
  Sex: Male

DRUGS (1)
  1. CITANEST PLAIN DENTAL [Suspect]
     Indication: LOCAL ANAESTHESIA
     Dosage: ONCE
     Dates: start: 20080401, end: 20080401

REACTIONS (9)
  - ANXIETY [None]
  - ASTHENIA [None]
  - CHEST DISCOMFORT [None]
  - DYSPNOEA [None]
  - FEELING ABNORMAL [None]
  - HYPERHIDROSIS [None]
  - HYPOAESTHESIA [None]
  - PARAESTHESIA [None]
  - VENTRICULAR EXTRASYSTOLES [None]
